FAERS Safety Report 16834226 (Version 1)
Quarter: 2019Q3

REPORT INFORMATION
  Report Type: Spontaneous
  Country: GB (occurrence: GB)
  Receive Date: 20190920
  Receipt Date: 20190920
  Transmission Date: 20191005
  Serious: Yes (Hospitalization)
  Sender: FDA-Public Use
  Company Number: GB-PFIZER INC-2019400460

PATIENT
  Age: 68 Year
  Sex: Female

DRUGS (1)
  1. TAZOCIN [Suspect]
     Active Substance: PIPERACILLIN SODIUM\TAZOBACTAM SODIUM
     Indication: OSTEOMYELITIS
     Dosage: 13.5 G, 1X/DAY
     Route: 051

REACTIONS (3)
  - Off label use [Unknown]
  - Liver function test abnormal [Recovering/Resolving]
  - Product use in unapproved indication [Unknown]
